FAERS Safety Report 18911411 (Version 2)
Quarter: 2021Q1

REPORT INFORMATION
  Report Type: Spontaneous
  Country: DK (occurrence: DK)
  Receive Date: 20210218
  Receipt Date: 20210322
  Transmission Date: 20210420
  Serious: Yes (Other)
  Sender: FDA-Public Use
  Company Number: NVSC2021DK033116

PATIENT
  Age: 59 Year
  Sex: Male

DRUGS (9)
  1. ADALIMUMAB [Suspect]
     Active Substance: ADALIMUMAB
     Indication: HIDRADENITIS
     Dosage: UNK
     Route: 058
  2. RIFAMPICIN [Suspect]
     Active Substance: RIFAMPIN
     Indication: HIDRADENITIS
     Dosage: UNK
     Route: 062
  3. DAPSONE. [Suspect]
     Active Substance: DAPSONE
     Indication: HIDRADENITIS
     Dosage: UNK
     Route: 065
  4. CLINDAMYCIN. [Suspect]
     Active Substance: CLINDAMYCIN
     Dosage: UNK
     Route: 062
  5. USTEKINUMAB [Suspect]
     Active Substance: USTEKINUMAB
     Indication: HIDRADENITIS
     Dosage: UNK
     Route: 065
  6. ACITRETIN. [Suspect]
     Active Substance: ACITRETIN
     Indication: HIDRADENITIS
     Dosage: UNK
     Route: 065
  7. LYMECYCLINE [Suspect]
     Active Substance: LYMECYCLINE
     Indication: HIDRADENITIS
     Dosage: UNK
     Route: 062
  8. ETANERCEPT [Suspect]
     Active Substance: ETANERCEPT
     Indication: HIDRADENITIS
     Dosage: UNK
     Route: 065
  9. CLINDAMYCIN. [Suspect]
     Active Substance: CLINDAMYCIN
     Indication: HIDRADENITIS
     Dosage: UNK
     Route: 061

REACTIONS (3)
  - Urosepsis [Unknown]
  - Therapeutic product effect incomplete [Unknown]
  - Product use in unapproved indication [Unknown]
